FAERS Safety Report 9258976 (Version 2)
Quarter: 2014Q1

REPORT INFORMATION
  Report Type: Spontaneous
  Country: US (occurrence: None)
  Receive Date: 20121212
  Receipt Date: 20130314
  Transmission Date: 20141002
  Serious: No
  Sender: FDA-Public Use
  Company Number: 1211USA004812

PATIENT
  Age: 59 Year
  Sex: Female

DRUGS (4)
  1. PEGINTRON [Suspect]
     Indication: HEPATITIS C
     Dosage: 150 MICROGRAM, QW, REDIPEN, SUBCUTANEOOUS
     Route: 058
  2. VICTRELIS [Suspect]
     Indication: HEPATITIS C
     Route: 048
     Dates: start: 20121026
  3. RIBASPHERE [Suspect]
     Indication: HEPATITIS C
     Route: 048
     Dates: start: 2012
  4. TYLENOL (ACETAMINOPHEN) [Concomitant]

REACTIONS (6)
  - Pain in extremity [None]
  - Dysgeusia [None]
  - Headache [None]
  - Fatigue [None]
  - Nausea [None]
  - Influenza like illness [None]
